FAERS Safety Report 23457068 (Version 1)
Quarter: 2024Q1

REPORT INFORMATION
  Report Type: Spontaneous
  Country: None (occurrence: ES)
  Receive Date: 20240130
  Receipt Date: 20240130
  Transmission Date: 20240410
  Serious: Yes (Other)
  Sender: FDA-Public Use
  Company Number: ES-B.Braun Medical Inc.-2152301

PATIENT
  Age: 41 Year
  Sex: Male

DRUGS (18)
  1. ACETAMINOPHEN [Suspect]
     Active Substance: ACETAMINOPHEN
     Indication: Migraine
  2. AMITRIPTYLINE HYDROCHLORIDE [Suspect]
     Active Substance: AMITRIPTYLINE HYDROCHLORIDE
  3. BOTULINUM TOXIN TYPE A [Suspect]
     Active Substance: BOTULINUM TOXIN TYPE A
  4. BROMAZEPAM [Suspect]
     Active Substance: BROMAZEPAM
  5. DICLOFENAC SODIUM [Suspect]
     Active Substance: DICLOFENAC\DICLOFENAC SODIUM
  6. ELETRIPTAN HYDROBROMIDE [Suspect]
     Active Substance: ELETRIPTAN HYDROBROMIDE
  7. FLUNARIZINE HYDROCHLORIDE [Suspect]
     Active Substance: FLUNARIZINE HYDROCHLORIDE
  8. ATROPA BELLADONNA\BUTALBITAL\CAFFEINE\ERGOTAMINE TARTRATE [Suspect]
     Active Substance: ATROPA BELLADONNA\BUTALBITAL\CAFFEINE\ERGOTAMINE TARTRATE
  9. IBUPROFEN [Suspect]
     Active Substance: IBUPROFEN
  10. LAMOTRIGINE [Suspect]
     Active Substance: LAMOTRIGINE
  11. METAMIZOLE MAGNESIUM [Suspect]
     Active Substance: METAMIZOLE MAGNESIUM
  12. PAROXETINE HYDROCHLORIDE [Suspect]
     Active Substance: PAROXETINE HYDROCHLORIDE\PAROXETINE HYDROCHLORIDE ANHYDROUS
  13. PREDNISONE [Suspect]
     Active Substance: PREDNISONE
  14. RIZATRIPTAN BENZOATE [Suspect]
     Active Substance: RIZATRIPTAN BENZOATE
  15. TOPIRAMATE [Suspect]
     Active Substance: TOPIRAMATE
  16. VALPROATE SODIUM [Suspect]
     Active Substance: VALPROATE SODIUM
  17. XEOMIN [Suspect]
     Active Substance: INCOBOTULINUMTOXINA
  18. ZOLMITRIPTAN [Suspect]
     Active Substance: ZOLMITRIPTAN

REACTIONS (6)
  - Insomnia [None]
  - Off label use [None]
  - Product use in unapproved indication [None]
  - Drug abuse [None]
  - Therapy partial responder [None]
  - Paraesthesia [None]
